FAERS Safety Report 20392682 (Version 6)
Quarter: 2022Q1

REPORT INFORMATION
  Report Type: Report from Study
  Country: US (occurrence: US)
  Receive Date: 20220128
  Receipt Date: 20220228
  Transmission Date: 20220423
  Serious: No
  Sender: FDA-Public Use
  Company Number: US-NOVARTISTESTPH-NVSC2022US018598

PATIENT
  Sex: Male

DRUGS (1)
  1. ENTRESTO [Suspect]
     Active Substance: SACUBITRIL\VALSARTAN
     Indication: Product used for unknown indication
     Dosage: 1 DOSAGE FORM, BID (24/26MG)
     Route: 065

REACTIONS (6)
  - Weight increased [Unknown]
  - Amnesia [Unknown]
  - COVID-19 [Recovering/Resolving]
  - Cough [Unknown]
  - Toothache [Unknown]
  - Product dose omission issue [Unknown]
